FAERS Safety Report 23431683 (Version 2)
Quarter: 2024Q2

REPORT INFORMATION
  Report Type: Spontaneous
  Country: US (occurrence: US)
  Receive Date: 20240123
  Receipt Date: 20240628
  Transmission Date: 20240716
  Serious: No
  Sender: FDA-Public Use
  Company Number: US-SANOFI-01904630

PATIENT
  Age: 67 Year
  Sex: Female

DRUGS (3)
  1. DUPIXENT [Suspect]
     Active Substance: DUPILUMAB
     Indication: Pruritus
     Dosage: 400 MG, 1X
     Route: 058
  2. DUPIXENT [Suspect]
     Active Substance: DUPILUMAB
     Indication: Hypersensitivity
     Dosage: 200MG QOW
  3. DUPIXENT [Suspect]
     Active Substance: DUPILUMAB
     Indication: Respiration abnormal

REACTIONS (7)
  - Aphonia [Unknown]
  - Dyspnoea [Unknown]
  - Injection site pain [Unknown]
  - Hypersensitivity [Unknown]
  - Product use in unapproved indication [Unknown]
  - Therapeutic response shortened [Unknown]
  - Wrong technique in product usage process [Unknown]

NARRATIVE: CASE EVENT DATE: 20240101
